FAERS Safety Report 25875545 (Version 2)
Quarter: 2025Q4

REPORT INFORMATION
  Report Type: Report from Study
  Country: CA (occurrence: CA)
  Receive Date: 20251003
  Receipt Date: 20251006
  Transmission Date: 20260117
  Serious: No
  Sender: ABBVIE
  Company Number: CA-ABBVIE-6480005

PATIENT
  Age: 48 Year
  Sex: Male

DRUGS (1)
  1. SKYRIZI [Suspect]
     Active Substance: RISANKIZUMAB-RZAA
     Indication: Crohn^s disease
     Dosage: LAST DOSE DATE 24 AUG 2025
     Route: 058

REACTIONS (6)
  - Hand dermatitis [Unknown]
  - Eye swelling [Unknown]
  - Eyelid ptosis [Unknown]
  - Abdominal pain [Unknown]
  - Diarrhoea [Unknown]
  - Uveitis [Unknown]

NARRATIVE: CASE EVENT DATE: 20250924
